FAERS Safety Report 9367073 (Version 1)
Quarter: 2013Q2

REPORT INFORMATION
  Report Type: Report from Study
  Country: US (occurrence: US)
  Receive Date: 20130625
  Receipt Date: 20130625
  Transmission Date: 20140414
  Serious: Yes (Other)
  Sender: FDA-Public Use
  Company Number: US-JNJFOC-20130609327

PATIENT
  Sex: Female

DRUGS (1)
  1. DOXORUBICIN HYDROCHLORIDE(DOXIL) [Suspect]
     Indication: BREAST CANCER METASTATIC
     Dosage: 1-HOUR INFUSION EVERY 28 DAYS
     Route: 042

REACTIONS (14)
  - Breast cancer metastatic [Unknown]
  - Neutropenia [Unknown]
  - Anaemia [Unknown]
  - Fatigue [Unknown]
  - Nausea [Unknown]
  - Vomiting [Unknown]
  - Mucosal inflammation [Unknown]
  - Stomatitis [Unknown]
  - Arthralgia [Unknown]
  - Myalgia [Unknown]
  - Palmar-plantar erythrodysaesthesia syndrome [Unknown]
  - Diarrhoea [Unknown]
  - Skin toxicity [Unknown]
  - Type III immune complex mediated reaction [Unknown]
